FAERS Safety Report 4450499-X (Version None)
Quarter: 2004Q3

REPORT INFORMATION
  Report Type: 
  Country: None (occurrence: None)
  Receive Date: 20040804
  Receipt Date: 20040513
  Transmission Date: 20050211
  Serious: Yes (Other)
  Sender: FDA-Public Use
  Company Number: 206547

PATIENT
  Age: 72 Year
  Sex: Female
  Weight: 113.8 kg

DRUGS (2)
  1. HERCEPTIN [Suspect]
     Indication: BREAST CANCER METASTATIC
     Dosage: 6 MG/KG, Q3W, INTRAVENOUS
     Route: 042
     Dates: start: 20031003, end: 20040510
  2. FASLODEX [Concomitant]

REACTIONS (1)
  - BRONCHOSPASM [None]
